FAERS Safety Report 13840543 (Version 2)
Quarter: 2017Q4

REPORT INFORMATION
  Report Type: Report from Study
  Country: BR (occurrence: BR)
  Receive Date: 20170807
  Receipt Date: 20171017
  Transmission Date: 20180320
  Serious: Yes (Other)
  Sender: FDA-Public Use
  Company Number: BR-BAYER-2017-055713

PATIENT
  Age: 69 Year
  Sex: Male

DRUGS (6)
  1. EUTHYROX [Concomitant]
     Active Substance: LEVOTHYROXINE SODIUM
     Indication: THYROID HORMONE REPLACEMENT THERAPY
     Dosage: 150 ?G, QD
     Route: 048
     Dates: start: 2002
  2. NEXAVAR [Suspect]
     Active Substance: SORAFENIB
     Indication: METASTASES TO LUNG
     Dosage: 400 MG, BID
     Route: 048
     Dates: start: 2017, end: 2017
  3. DIAMICRON [Concomitant]
     Active Substance: GLICLAZIDE
     Indication: DIABETES MELLITUS
     Dosage: 1 DF, BID
     Route: 048
  4. NEXAVAR [Suspect]
     Active Substance: SORAFENIB
     Indication: FOLLICULAR THYROID CANCER
     Dosage: 400 MG, BID
     Route: 048
     Dates: start: 20170115, end: 2017
  5. NEXAVAR [Suspect]
     Active Substance: SORAFENIB
     Indication: FOLLICULAR THYROID CANCER
     Dosage: 400 MG, BID
     Route: 048
     Dates: start: 2017
  6. DIAMICRON [Concomitant]
     Active Substance: GLICLAZIDE
     Indication: DIABETES MELLITUS
     Dosage: 1 DF, QD
     Route: 048
     Dates: start: 2012

REACTIONS (68)
  - Pharyngeal haemorrhage [Recovering/Resolving]
  - Skin fissures [Not Recovered/Not Resolved]
  - Blister [Recovered/Resolved]
  - Pain of skin [Not Recovered/Not Resolved]
  - Skin exfoliation [Not Recovered/Not Resolved]
  - Gait disturbance [None]
  - Blister [None]
  - General physical health deterioration [Not Recovered/Not Resolved]
  - Skin exfoliation [Not Recovered/Not Resolved]
  - Arthralgia [Recovering/Resolving]
  - Alopecia [Not Recovered/Not Resolved]
  - Hyperhidrosis [Not Recovered/Not Resolved]
  - Mucosal inflammation [Recovering/Resolving]
  - Blister [Recovered/Resolved]
  - Dry skin [Recovering/Resolving]
  - Weight decreased [Not Recovered/Not Resolved]
  - Nail discolouration [Not Recovered/Not Resolved]
  - Peripheral swelling [Recovering/Resolving]
  - Pain in extremity [Not Recovered/Not Resolved]
  - Vomiting [Recovered/Resolved]
  - Erythema [Not Recovered/Not Resolved]
  - Hyperkeratosis [Not Recovered/Not Resolved]
  - Toothache [Recovering/Resolving]
  - Hair growth rate abnormal [Not Recovered/Not Resolved]
  - Blister [Recovered/Resolved]
  - Skin hypertrophy [Not Recovered/Not Resolved]
  - Gait disturbance [Not Recovered/Not Resolved]
  - Hyperkeratosis [Not Recovered/Not Resolved]
  - Nausea [Recovered/Resolved]
  - Asthenia [Recovering/Resolving]
  - Pain in extremity [Not Recovered/Not Resolved]
  - Dysphonia [Recovering/Resolving]
  - Hyperkeratosis [Not Recovered/Not Resolved]
  - Increased bronchial secretion [Not Recovered/Not Resolved]
  - Cough [Not Recovered/Not Resolved]
  - Mass [Recovering/Resolving]
  - Glossodynia [Recovering/Resolving]
  - Toothache [Recovering/Resolving]
  - Rash macular [Recovered/Resolved]
  - Glossodynia [Not Recovered/Not Resolved]
  - Nail disorder [Not Recovered/Not Resolved]
  - Swelling face [Recovering/Resolving]
  - Hyperhidrosis [Recovering/Resolving]
  - Influenza [Recovering/Resolving]
  - Saliva altered [Recovering/Resolving]
  - Pharyngeal inflammation [Recovered/Resolved]
  - Product availability issue [None]
  - Dry skin [None]
  - Dizziness [Recovered/Resolved]
  - Throat irritation [Recovering/Resolving]
  - Hypoaesthesia teeth [Not Recovered/Not Resolved]
  - Tongue injury [Recovering/Resolving]
  - Hyperhidrosis [None]
  - Hyperkeratosis [None]
  - Skin exfoliation [None]
  - Mouth haemorrhage [Recovering/Resolving]
  - Gait disturbance [Recovering/Resolving]
  - Pain in extremity [Recovering/Resolving]
  - Skin exfoliation [Recovering/Resolving]
  - Headache [Recovered/Resolved]
  - Dry skin [Not Recovered/Not Resolved]
  - Dry skin [Not Recovered/Not Resolved]
  - Oropharyngeal pain [Recovering/Resolving]
  - Hyperkeratosis [Not Recovered/Not Resolved]
  - Erythema [Not Recovered/Not Resolved]
  - Erythema [Not Recovered/Not Resolved]
  - Hypoaesthesia teeth [Recovering/Resolving]
  - Blister [Recovering/Resolving]

NARRATIVE: CASE EVENT DATE: 201701
